FAERS Safety Report 8988652 (Version 5)
Quarter: 2014Q1

REPORT INFORMATION
  Report Type: Report from Study
  Country: JP (occurrence: JP)
  Receive Date: 20121228
  Receipt Date: 20140131
  Transmission Date: 20141002
  Serious: Yes (Other)
  Sender: FDA-Public Use
  Company Number: JP-VERTEX PHARMACEUTICALS INC.-2012-026677

PATIENT
  Age: 62 Year
  Sex: Female

DRUGS (27)
  1. VX-950 (TELAPREVIR) [Suspect]
     Indication: CHRONIC HEPATITIS C
     Dosage: 1500 MG, QD
     Route: 048
     Dates: start: 20120906, end: 20121010
  2. VX-950 (TELAPREVIR) [Suspect]
     Dosage: 1500 MG, QD
     Route: 048
     Dates: start: 20121025, end: 20121128
  3. REBETOL [Suspect]
     Indication: CHRONIC HEPATITIS C
     Dosage: 800 MG, QD
     Route: 048
     Dates: start: 20120906, end: 20120926
  4. REBETOL [Suspect]
     Dosage: 600 MG, QD
     Route: 048
     Dates: start: 20120927, end: 20121010
  5. REBETOL [Suspect]
     Dosage: 200 MG, QD
     Route: 048
     Dates: start: 20121025, end: 20121219
  6. REBETOL [Suspect]
     Dosage: 200 MG, QD
     Route: 048
     Dates: start: 20121227, end: 20130103
  7. REBETOL [Suspect]
     Dosage: 600 MG, QD
     Route: 048
     Dates: start: 20130104, end: 20130109
  8. REBETOL [Suspect]
     Dosage: 800 MG, QD
     Route: 048
     Dates: start: 20130110, end: 20130116
  9. REBETOL [Suspect]
     Dosage: 600 MG, QD
     Route: 048
     Dates: start: 20130124, end: 20130130
  10. REBETOL [Suspect]
     Dosage: 200 MG, QD
     Route: 048
     Dates: start: 20130131, end: 20130213
  11. REBETOL [Suspect]
     Dosage: 400 MG, QD
     Route: 048
     Dates: start: 20130214, end: 20130220
  12. PEGINTRON [Suspect]
     Indication: CHRONIC HEPATITIS C
     Dosage: 1.5 ?G/KG, QW
     Route: 058
     Dates: start: 20120906, end: 20120906
  13. PEGINTRON [Suspect]
     Dosage: 0.75 ?G/KG, QW
     Route: 058
     Dates: start: 20120913, end: 20120927
  14. PEGINTRON [Suspect]
     Dosage: 1.5 ?G/KG, QW
     Route: 058
     Dates: start: 20121004, end: 20121004
  15. PEGINTRON [Suspect]
     Dosage: 1.5 ?G/KG, QW
     Route: 058
     Dates: start: 20121025, end: 20121025
  16. PEGINTRON [Suspect]
     Dosage: 0.75 ?G/KG, QW
     Route: 058
     Dates: start: 20121102, end: 20121129
  17. PEGINTRON [Suspect]
     Dosage: 1.5 ?G/KG, QW
     Route: 058
     Dates: start: 20121213, end: 20121213
  18. PEGINTRON [Suspect]
     Dosage: 0.7 ?G/KG, UNK
     Route: 058
     Dates: start: 20121227, end: 20130110
  19. PEGINTRON [Suspect]
     Dosage: 0.7 ?G/KG, QW
     Route: 058
     Dates: start: 20130124, end: 20130214
  20. BAYASPIRIN [Concomitant]
     Dosage: 100 MG, QD
     Route: 048
  21. CARNACULIN [Concomitant]
     Dosage: 150 MG, QD
     Route: 048
  22. ATELEC [Concomitant]
     Dosage: 5 MG, QD
     Route: 048
  23. KRACIE SAIREITO EXTRACT FINE GRANULES [Concomitant]
     Dosage: 8.1 G, QD
     Route: 048
  24. MAGNESIUM OXIDE [Concomitant]
     Dosage: 0.5 G, QD
     Route: 048
  25. NIFLAN [Concomitant]
     Dosage: 0.1 %, QID
     Route: 047
  26. NEXIUM [Concomitant]
     Dosage: 10 MG, QD
     Route: 048
     Dates: start: 20121004
  27. TSUMURA JUZENTAIHOTO EXTRACT GRANULES FOR ETHICAL USE [Concomitant]
     Dosage: 7.5 G, QD
     Route: 048
     Dates: start: 20121018

REACTIONS (6)
  - Neutrophil count decreased [Recovered/Resolved]
  - Anaemia [Recovered/Resolved]
  - Neutrophil count decreased [Recovered/Resolved]
  - Neutrophil count decreased [Recovered/Resolved]
  - Neutrophil count decreased [Recovered/Resolved]
  - Neutrophil count decreased [Recovered/Resolved]
